FAERS Safety Report 23569182 (Version 1)
Quarter: 2024Q1

REPORT INFORMATION
  Report Type: Other
  Country: IT (occurrence: IT)
  Receive Date: 20240227
  Receipt Date: 20240227
  Transmission Date: 20240410
  Serious: Yes (Other)
  Sender: FDA-Public Use
  Company Number: IT-BoehringerIngelheim-2024-BI-009200

PATIENT
  Age: 53 Year
  Sex: Male
  Weight: 76 kg

DRUGS (8)
  1. ALTEPLASE [Suspect]
     Active Substance: ALTEPLASE
     Indication: Frostbite
     Dosage: APPROXIMATELY 4 HOURS AFTER REWARMING WITH A BOLUS
     Route: 040
  2. ALTEPLASE [Suspect]
     Active Substance: ALTEPLASE
     Dosage: CONTINUOUS INFUSION OF 1 MG/H
     Route: 042
  3. ENOXAPARIN [Suspect]
     Active Substance: ENOXAPARIN
     Indication: Thrombosis prophylaxis
     Dosage: 6000 IE/DAY
     Route: 065
  4. ILOPROST [Concomitant]
     Active Substance: ILOPROST
     Indication: Frostbite
     Dosage: 0.5 NG/KG/MIN INCREASING TO 1.0 NG/KG/MIN
  5. ROPIVACAINE [Concomitant]
     Active Substance: ROPIVACAINE
     Indication: Frostbite
     Dosage: 0.2% 4 ML/H
  6. AMOXICILLIN\CLAVULANIC ACID [Concomitant]
     Active Substance: AMOXICILLIN\CLAVULANIC ACID
     Indication: Antibiotic therapy
     Dosage: 2.2 G X 3/D
  7. IBUPROFEN [Concomitant]
     Active Substance: IBUPROFEN
     Indication: Frostbite
  8. DEXAMETHASONE [Concomitant]
     Active Substance: DEXAMETHASONE
     Indication: Frostbite

REACTIONS (5)
  - Compartment syndrome [Unknown]
  - Post-traumatic stress disorder [Unknown]
  - Off label use [Unknown]
  - Blood blister [Unknown]
  - Musculoskeletal pain [Unknown]
